FAERS Safety Report 8598178-1 (Version None)
Quarter: 2012Q3

REPORT INFORMATION
  Report Type: 
  Country: None (occurrence: None)
  Receive Date: 20120816
  Receipt Date: 20120807
  Transmission Date: 20120928
  Serious: Yes (Hospitalization, Other)
  Sender: FDA-Public Use
  Company Number: PHEH2012US015593

PATIENT
  Sex: Male

DRUGS (1)
  1. GILENYA [Suspect]
     Indication: PRIMARY PROGRESSIVE MULTIPLE SCLEROSIS
     Dates: start: 20110501

REACTIONS (2)
  - BLOOD PRESSURE DECREASED [None]
  - GAIT DISTURBANCE [None]
